FAERS Safety Report 19313686 (Version 1)
Quarter: 2021Q2

REPORT INFORMATION
  Report Type: Spontaneous
  Country: GB (occurrence: GB)
  Receive Date: 20210527
  Receipt Date: 20210527
  Transmission Date: 20210717
  Serious: Yes (Hospitalization)
  Sender: FDA-Public Use
  Company Number: GB-REGENERON PHARMACEUTICALS, INC.-2021-53359

PATIENT

DRUGS (2)
  1. PRALUENT [Suspect]
     Active Substance: ALIROCUMAB
     Indication: MYOCARDIAL ISCHAEMIA
     Dosage: 150 MG, QOW
     Route: 065
     Dates: start: 20180706
  2. PRALUENT [Suspect]
     Active Substance: ALIROCUMAB
     Indication: DRUG INTOLERANCE

REACTIONS (2)
  - Product dose omission issue [Unknown]
  - Hospitalisation [Unknown]

NARRATIVE: CASE EVENT DATE: 20210514
